FAERS Safety Report 16270365 (Version 1)
Quarter: 2019Q2

REPORT INFORMATION
  Report Type: Spontaneous
  Country: US (occurrence: US)
  Receive Date: 20190329
  Receipt Date: 20190329
  Transmission Date: 20190711
  Serious: No
  Sender: FDA-Public Use
  Company Number: None

PATIENT
  Age: 32 Year
  Sex: Female

DRUGS (1)
  1. TALTZ [Suspect]
     Active Substance: IXEKIZUMAB
     Indication: PSORIASIS
     Dosage: INJECT 80MG (1 SYRINGE) SUBCUTANEOUSLY EVERY 2 WEEKS AT WEEKS 2-12 AS DIRECTED
     Route: 058
     Dates: start: 201811

REACTIONS (3)
  - Maternal exposure timing unspecified [None]
  - Maternal drugs affecting foetus [None]
  - Therapy cessation [None]
